FAERS Safety Report 6750402-3 (Version None)
Quarter: 2010Q2

REPORT INFORMATION
  Report Type: 
  Country: None (occurrence: None)
  Receive Date: 20100527
  Receipt Date: 20100426
  Transmission Date: 20101027
  Serious: Yes (Other)
  Sender: FDA-Public Use
  Company Number: 2010SP023840

PATIENT
  Age: 21 Year
  Sex: Female
  Weight: 63.5036 kg

DRUGS (8)
  1. CLARITIN [Suspect]
     Indication: EYE PRURITUS
     Dosage: 5 MG; ONCE; PO
     Route: 048
     Dates: start: 20100424, end: 20100424
  2. CLARITIN [Suspect]
     Indication: LACRIMATION INCREASED
     Dosage: 5 MG; ONCE; PO
     Route: 048
     Dates: start: 20100424, end: 20100424
  3. CLARITIN [Suspect]
     Indication: NASAL CONGESTION
     Dosage: 5 MG; ONCE; PO
     Route: 048
     Dates: start: 20100424, end: 20100424
  4. CLARITIN [Suspect]
     Indication: NASAL DISCOMFORT
     Dosage: 5 MG; ONCE; PO
     Route: 048
     Dates: start: 20100424, end: 20100424
  5. CLARITIN [Suspect]
     Indication: RHINORRHOEA
     Dosage: 5 MG; ONCE; PO
     Route: 048
     Dates: start: 20100424, end: 20100424
  6. CLARITIN [Suspect]
     Indication: THROAT IRRITATION
     Dosage: 5 MG; ONCE; PO
     Route: 048
     Dates: start: 20100424, end: 20100424
  7. ORAL CONTRACEPTIVE NOS [Suspect]
     Indication: CONTRACEPTION
  8. XANAX (CON.) [Concomitant]

REACTIONS (4)
  - EYE SWELLING [None]
  - PHARYNGEAL OEDEMA [None]
  - SWELLING FACE [None]
  - SWOLLEN TONGUE [None]
